FAERS Safety Report 7508126-0 (Version None)
Quarter: 2011Q2

REPORT INFORMATION
  Report Type: 
  Country: None (occurrence: None)
  Receive Date: 20110527
  Receipt Date: 20110120
  Transmission Date: 20111010
  Serious: Yes (Hospitalization)
  Sender: FDA-Public Use
  Company Number: US-BAYER-201038136NA

PATIENT
  Age: 33 Year
  Sex: Female
  Weight: 72.562 kg

DRUGS (10)
  1. YASMIN [Suspect]
     Indication: PREMENSTRUAL SYNDROME
     Dosage: UNK
     Route: 048
     Dates: start: 20030101, end: 20040101
  2. DROSPIRENONE AND ETHINYL ESTRADIOL [Suspect]
     Indication: PREMENSTRUAL SYNDROME
     Dosage: UNK
     Route: 048
     Dates: start: 20030101, end: 20040101
  3. IBUPROFEN [Concomitant]
  4. PENICILLIN [Concomitant]
     Indication: PYREXIA
  5. PROMETHAZINE [Concomitant]
     Dosage: 25 MG, UNK
     Route: 048
     Dates: start: 20061001
  6. OTHER ANTI-ASTHMATICS, INHALANTS [Concomitant]
     Indication: ASTHMA
  7. LASIX [Concomitant]
     Dosage: UNK
     Dates: start: 20041001, end: 20061101
  8. PERCOCET [Concomitant]
  9. ASCORBIC ACID [Concomitant]
  10. VICOPROFEN [Concomitant]
     Dosage: 2 DF, PRN
     Route: 048
     Dates: start: 20061012

REACTIONS (5)
  - BILIARY DYSKINESIA [None]
  - CHOLECYSTITIS CHRONIC [None]
  - NECROSIS [None]
  - GALLBLADDER DISORDER [None]
  - GALLBLADDER NON-FUNCTIONING [None]
